FAERS Safety Report 8576646 (Version 2)
Quarter: 2012Q4

REPORT INFORMATION
  Report Type: Report from Study
  Country: DE (occurrence: DE)
  Receive Date: 20120523
  Receipt Date: 20120920
  Transmission Date: 20130627
  Serious: Yes (Hospitalization)
  Sender: FDA-Public Use
  Company Number: DE-TEVA-337908GER

PATIENT
  Age: 49 Year
  Sex: Female
  Weight: 70 kg

DRUGS (5)
  1. MYOCET [Suspect]
     Indication: BREAST CANCER
     Route: 042
     Dates: start: 20120223, end: 20120426
  2. TAXOL [Suspect]
     Indication: BREAST CANCER
     Route: 042
     Dates: start: 20120223, end: 20120426
  3. AVASTIN [Suspect]
     Indication: BREAST CANCER
     Route: 042
     Dates: start: 20120223, end: 20120426
  4. PREDNISOLON [Concomitant]
     Dates: start: 20120412
  5. SALBUTAMOL AEROSOL [Concomitant]
     Route: 055
     Dates: start: 20120510

REACTIONS (2)
  - Lung infiltration [Recovered/Resolved]
  - Pyrexia [Recovered/Resolved]
